FAERS Safety Report 11514485 (Version 1)
Quarter: 2015Q3

REPORT INFORMATION
  Report Type: Spontaneous
  Country: TR (occurrence: TR)
  Receive Date: 20150916
  Receipt Date: 20150916
  Transmission Date: 20151125
  Serious: Yes (Death, Hospitalization, Other)
  Sender: FDA-Public Use
  Company Number: TR-PFIZER INC-2015212640

PATIENT
  Age: 18 Year
  Sex: Female
  Weight: 46 kg

DRUGS (7)
  1. AMBISOME [Concomitant]
     Active Substance: AMPHOTERICIN B
     Indication: ANTIFUNGAL TREATMENT
  2. MERONEM [Concomitant]
     Active Substance: MEROPENEM
  3. COLISTIN [Concomitant]
     Active Substance: COLISTIN
  4. VFEND [Suspect]
     Active Substance: VORICONAZOLE
     Indication: FUNGAL INFECTION
     Dosage: 300 MG, 2X/DAY
     Route: 048
     Dates: start: 20150615, end: 20150622
  5. VFEND [Suspect]
     Active Substance: VORICONAZOLE
     Indication: SEPSIS
  6. LINEZOLID. [Concomitant]
     Active Substance: LINEZOLID
  7. BACTRIM [Concomitant]
     Active Substance: SULFAMETHOXAZOLE\TRIMETHOPRIM

REACTIONS (3)
  - Death [Fatal]
  - Visual impairment [Recovered/Resolved]
  - Hallucination [Not Recovered/Not Resolved]

NARRATIVE: CASE EVENT DATE: 20150622
